FAERS Safety Report 13548069 (Version 1)
Quarter: 2017Q2

REPORT INFORMATION
  Report Type: Spontaneous
  Country: JP (occurrence: JP)
  Receive Date: 20170516
  Receipt Date: 20170516
  Transmission Date: 20170830
  Serious: Yes (Other)
  Sender: FDA-Public Use
  Company Number: JP-SHIRE-JP201703648

PATIENT
  Age: 12 Year
  Sex: Male

DRUGS (1)
  1. ELAPRASE [Suspect]
     Active Substance: IDURSULFASE
     Indication: MUCOPOLYSACCHARIDOSIS II
     Dosage: UNK, 1X/WEEK
     Route: 041

REACTIONS (5)
  - Pyrexia [Unknown]
  - Chills [Unknown]
  - Infusion related reaction [Unknown]
  - Device related infection [Unknown]
  - Catheter site ulcer [Unknown]

NARRATIVE: CASE EVENT DATE: 2016
